FAERS Safety Report 6377632-7 (Version None)
Quarter: 2009Q3

REPORT INFORMATION
  Report Type: 
  Country: None (occurrence: None)
  Receive Date: 20090925
  Receipt Date: 20090918
  Transmission Date: 20100115
  Serious: Yes (Hospitalization)
  Sender: FDA-Public Use
  Company Number: SE-ALLERGAN-0912469US

PATIENT
  Age: 66 Year
  Sex: Male
  Weight: 86.5 kg

DRUGS (6)
  1. BOTULINUM TOXIN TYPE A [Suspect]
     Indication: MUSCLE SPASTICITY
     Dosage: 380 UNITS, SINGLE
     Route: 030
     Dates: start: 20090126, end: 20090126
  2. BLINDED PLACEBO [Suspect]
     Indication: MUSCLE SPASTICITY
     Dosage: 380 UNITS, SINGLE
     Route: 030
     Dates: start: 20090126, end: 20090126
  3. BOTOX [Suspect]
     Indication: MUSCLE SPASTICITY
     Dosage: 380 UNITS, SINGLE
     Route: 030
     Dates: start: 20090701, end: 20090701
  4. CITALOPRAM HYDROBROMIDE [Concomitant]
     Dosage: 40 MG, QD
  5. AMLODIPINE [Concomitant]
     Dosage: 10 MG, QD
  6. ATARAX [Concomitant]
     Dosage: 25 MG, PRN

REACTIONS (1)
  - HIP FRACTURE [None]
